FAERS Safety Report 21113308 (Version 1)
Quarter: 2022Q3

REPORT INFORMATION
  Report Type: Spontaneous
  Country: US (occurrence: None)
  Receive Date: 20220721
  Receipt Date: 20220721
  Transmission Date: 20221027
  Serious: No
  Sender: FDA-Public Use
  Company Number: None

PATIENT
  Age: 58 Year
  Sex: Female
  Weight: 137.25 kg

DRUGS (16)
  1. PAXLOVID [Suspect]
     Active Substance: NIRMATRELVIR\RITONAVIR
     Indication: COVID-19
     Dates: start: 20220712, end: 20220716
  2. NOVOLIN N [Concomitant]
     Active Substance: INSULIN HUMAN
  3. LASIX [Concomitant]
     Active Substance: FUROSEMIDE
  4. GLIMEPIRIDE [Concomitant]
  5. METFORMIN [Concomitant]
     Active Substance: METFORMIN HYDROCHLORIDE
  6. GABAPENTIN [Concomitant]
     Active Substance: GABAPENTIN
  7. VERAPAMIL [Concomitant]
  8. METATOPROL [Concomitant]
  9. LIPITOR [Concomitant]
     Active Substance: ATORVASTATIN CALCIUM
  10. MOTRIN [Concomitant]
     Active Substance: IBUPROFEN
  11. SOMA [Concomitant]
     Active Substance: CARISOPRODOL
  12. PERCOCET [Concomitant]
  13. MULTIVITAMIN FOR OVER 50 [Concomitant]
  14. BIOTIN [Concomitant]
     Active Substance: BIOTIN
  15. VITAMIN B12 [Concomitant]
     Active Substance: CYANOCOBALAMIN
  16. VITAMIN D3 [Concomitant]
     Active Substance: CHOLECALCIFEROL

REACTIONS (2)
  - Dysgeusia [None]
  - Diarrhoea [None]

NARRATIVE: CASE EVENT DATE: 20220715
